FAERS Safety Report 10237153 (Version 1)
Quarter: 2014Q2

REPORT INFORMATION
  Report Type: Spontaneous
  Country: US (occurrence: US)
  Receive Date: 20140613
  Receipt Date: 20140613
  Transmission Date: 20141212
  Serious: Yes (Death)
  Sender: FDA-Public Use
  Company Number: US-GLAXOSMITHKLINE-A1077017A

PATIENT
  Age: 61 Year
  Sex: Male

DRUGS (3)
  1. VOTRIENT [Suspect]
     Indication: PRODUCT USED FOR UNKNOWN INDICATION
     Dosage: 200MG SEE DOSAGE TEXT
     Route: 048
  2. LEVOTHYROXIN [Concomitant]
  3. HYDROCODONE/ APAP [Concomitant]

REACTIONS (1)
  - Death [Fatal]
